FAERS Safety Report 7525824-3 (Version None)
Quarter: 2011Q2

REPORT INFORMATION
  Report Type: 
  Country: None (occurrence: None)
  Receive Date: 20110606
  Receipt Date: 20110519
  Transmission Date: 20111010
  Serious: Yes (Hospitalization)
  Sender: FDA-Public Use
  Company Number: A0781095A

PATIENT
  Age: 48 Year
  Sex: Male
  Weight: 127.3 kg

DRUGS (8)
  1. GLUCOVANCE [Concomitant]
  2. PRILOSEC [Concomitant]
  3. AVANDIA [Suspect]
     Indication: DIABETES MELLITUS
     Dosage: 8MG PER DAY
     Route: 048
  4. AVANDAMET [Suspect]
     Indication: DIABETES MELLITUS
     Dosage: 1TAB TWICE PER DAY
     Route: 048
     Dates: start: 20041014
  5. ULTRAM [Concomitant]
  6. GLUCOPHAGE [Concomitant]
  7. NASONEX [Concomitant]
  8. GLYNASE [Concomitant]

REACTIONS (4)
  - MYOCARDIAL ISCHAEMIA [None]
  - MYOCARDIAL INFARCTION [None]
  - CORONARY ARTERY DISEASE [None]
  - CORONARY ARTERY STENOSIS [None]
